FAERS Safety Report 6536861-X (Version None)
Quarter: 2010Q1

REPORT INFORMATION
  Report Type: 
  Country: None (occurrence: None)
  Receive Date: 20100107
  Receipt Date: 20100104
  Transmission Date: 20100710
  Serious: Yes (Other)
  Sender: FDA-Public Use
  Company Number: ALL1-2009-03584

PATIENT
  Age: 66 Year
  Sex: Male

DRUGS (3)
  1. LIALDA [Suspect]
     Indication: COLITIS ULCERATIVE
     Dosage: ORAL
     Route: 048
     Dates: start: 20080101, end: 20090101
  2. LIALDA [Suspect]
     Indication: COLITIS ULCERATIVE
     Dosage: ORAL
     Route: 048
     Dates: start: 20090826
  3. OMEPRAZOLE (OMEPRAZOLE) CAPSULE [Concomitant]

REACTIONS (1)
  - GLAUCOMA [None]
